FAERS Safety Report 5579935-2 (Version None)
Quarter: 2007Q4

REPORT INFORMATION
  Report Type: 
  Country: None (occurrence: None)
  Receive Date: 20071226
  Receipt Date: 20071211
  Transmission Date: 20080405
  Serious: Yes (Hospitalization)
  Sender: FDA-Public Use
  Company Number: WAES 0710USA02946

PATIENT
  Age: 83 Year
  Sex: Male
  Weight: 63.9572 kg

DRUGS (16)
  1. CAP VORINOSTAT UNK [Suspect]
     Indication: MYELODYSPLASTIC SYNDROME
     Dosage: 400 MG/DAILY/PO
     Route: 048
     Dates: start: 20070921, end: 20071004
  2. IMODIUM [Concomitant]
  3. MIRALAX [Concomitant]
  4. PEPCID [Concomitant]
  5. REGLAN [Concomitant]
  6. TYLENOL [Concomitant]
  7. VALTREX [Concomitant]
  8. ZOFRAN [Concomitant]
  9. ZOLOFT [Concomitant]
  10. ASPIRIN [Concomitant]
  11. CEFEPIME [Concomitant]
  12. DIPHENOXYLATE [Concomitant]
  13. GUAIFENESIN [Concomitant]
  14. LEVOTHYROXINE SODIUM [Concomitant]
  15. PROPOXYPHENE HYDROCHLORIDE [Concomitant]
  16. SENNA [Concomitant]

REACTIONS (9)
  - ABNORMAL BEHAVIOUR [None]
  - AGGRESSION [None]
  - CHRONIC OBSTRUCTIVE PULMONARY DISEASE [None]
  - DISORIENTATION [None]
  - FALL [None]
  - MENTAL STATUS CHANGES [None]
  - PNEUMONIA [None]
  - RENAL FAILURE ACUTE [None]
  - URINARY RETENTION [None]
